FAERS Safety Report 20214830 (Version 1)
Quarter: 2021Q4

REPORT INFORMATION
  Report Type: Spontaneous
  Country: JP (occurrence: JP)
  Receive Date: 20211222
  Receipt Date: 20211222
  Transmission Date: 20220304
  Serious: Yes (Hospitalization, Other)
  Sender: FDA-Public Use
  Company Number: JP-NOVARTISPH-NVSJ2021JP020979

PATIENT
  Age: 52 Year
  Sex: Female
  Weight: 41.5 kg

DRUGS (9)
  1. VALSARTAN [Suspect]
     Active Substance: VALSARTAN
     Indication: Hypertension
     Dosage: 160 MG
     Route: 065
     Dates: start: 20070101, end: 200705
  2. FUROSEMIDE [Concomitant]
     Active Substance: FUROSEMIDE
     Indication: Hypertension
     Dosage: 40 MG
     Route: 065
     Dates: start: 20070101, end: 200705
  3. CARVEDILOL [Concomitant]
     Active Substance: CARVEDILOL
     Indication: Hypertension
     Dosage: 10 MG
     Route: 065
     Dates: start: 20070101, end: 200705
  4. NIFEDIPINE [Concomitant]
     Active Substance: NIFEDIPINE
     Indication: Hypertension
     Dosage: 40 MG
     Route: 065
     Dates: start: 20070101, end: 200705
  5. NIFEDIPINE [Concomitant]
     Active Substance: NIFEDIPINE
     Dosage: 60 MG
     Route: 065
  6. NIFEDIPINE [Concomitant]
     Active Substance: NIFEDIPINE
     Dosage: 20 MG
     Route: 065
     Dates: start: 20070731
  7. DOXAZOSIN [Concomitant]
     Active Substance: DOXAZOSIN MESYLATE
     Indication: Hypertension
     Dosage: 2 MG
     Route: 065
     Dates: start: 20070101, end: 200705
  8. OLMESARTAN [Concomitant]
     Active Substance: OLMESARTAN
     Indication: Product used for unknown indication
     Dosage: 20 MG
     Route: 065
     Dates: start: 20070731
  9. OLMESARTAN [Concomitant]
     Active Substance: OLMESARTAN
     Dosage: 40 MG
     Route: 065

REACTIONS (11)
  - Polyuria [Unknown]
  - Polydipsia [Unknown]
  - Concomitant disease progression [Unknown]
  - Blood potassium decreased [Unknown]
  - Proteinuria [Unknown]
  - Posterior reversible encephalopathy syndrome [Unknown]
  - Retinal haemorrhage [Unknown]
  - Vitiligo [Unknown]
  - Adrenomegaly [Unknown]
  - Cardiac murmur [Unknown]
  - Intentional dose omission [Unknown]

NARRATIVE: CASE EVENT DATE: 20070101
